FAERS Safety Report 7604338-6 (Version None)
Quarter: 2011Q3

REPORT INFORMATION
  Report Type: 
  Country: None (occurrence: None)
  Receive Date: 20110712
  Receipt Date: 20110701
  Transmission Date: 20111222
  Serious: Yes (Hospitalization)
  Sender: FDA-Public Use
  Company Number: PHHY2011NL58589

PATIENT
  Sex: Male

DRUGS (2)
  1. ZOMETA [Suspect]
     Dosage: 4 MG/5 ML,  PER 28 DAYS IV IN 15 MINUTES
     Dates: start: 20110607
  2. ZOMETA [Suspect]
     Indication: PROSTATE CANCER METASTATIC
     Dosage: 4 MG/5 ML,  PER 28 DAYS IV IN 15 MINUTES
     Dates: start: 20100415

REACTIONS (2)
  - PNEUMONIA [None]
  - DYSPNOEA [None]
